FAERS Safety Report 5878480-4 (Version None)
Quarter: 2008Q3

REPORT INFORMATION
  Report Type: 
  Country: None (occurrence: None)
  Receive Date: 20080911
  Receipt Date: 20080728
  Transmission Date: 20090109
  Serious: No
  Sender: FDA-Public Use
  Company Number: US-AMGEN-KDL297415

PATIENT
  Sex: Female

DRUGS (12)
  1. NEUPOGEN [Suspect]
     Indication: NEUTROPENIA
     Dates: start: 20070101
  2. ENALAPRIL MALEATE [Concomitant]
     Dates: end: 20080201
  3. RAMIPRIL [Concomitant]
     Dates: start: 20080301
  4. RAPAMUNE [Concomitant]
  5. PRILOSEC [Concomitant]
  6. PROGRAF [Concomitant]
  7. ASPIRIN [Concomitant]
  8. LIPITOR [Concomitant]
  9. LABETALOL HCL [Concomitant]
  10. PREDNISONE TAB [Concomitant]
  11. NORVASC [Concomitant]
  12. JANUVIA [Concomitant]

REACTIONS (1)
  - WHITE BLOOD CELL COUNT DECREASED [None]
